FAERS Safety Report 6111004-5 (Version None)
Quarter: 2009Q1

REPORT INFORMATION
  Report Type: 
  Country: None (occurrence: None)
  Receive Date: 20090311
  Receipt Date: 20090303
  Transmission Date: 20090719
  Serious: Yes (Hospitalization, Other)
  Sender: FDA-Public Use
  Company Number: US-BAYER-200837500NA

PATIENT
  Age: 53 Year
  Sex: Female
  Weight: 69 kg

DRUGS (18)
  1. CAMPATH [Suspect]
     Indication: MULTIPLE SCLEROSIS RELAPSE
     Dates: start: 20061201, end: 20061201
  2. CAMPATH [Suspect]
     Dates: start: 20071203, end: 20071205
  3. GLATIRAMER ACETATE + METHOTREXATE [Concomitant]
     Dates: end: 20050101
  4. SOLU-MEDROL [Concomitant]
     Indication: PROGRESSIVE RELAPSING MULTIPLE SCLEROSIS
     Route: 042
     Dates: start: 20060101, end: 20060101
  5. SOLU-MEDROL [Concomitant]
     Dates: start: 20070101, end: 20070101
  6. DAPSONE [Concomitant]
     Indication: ANTIFUNGAL PROPHYLAXIS
     Dates: start: 20070101, end: 20080101
  7. DAPSONE [Concomitant]
     Dates: start: 20060101, end: 20070101
  8. ACYCLOVIR [Concomitant]
     Indication: INFECTION PROPHYLAXIS
     Dates: start: 20070101, end: 20080101
  9. ACYCLOVIR [Concomitant]
     Dates: start: 20060101, end: 20070101
  10. ZONISAMIDE [Concomitant]
     Dosage: TOTAL DAILY DOSE: 500 MG
     Dates: start: 20080114
  11. ZONISAMIDE [Concomitant]
     Dosage: TOTAL DAILY DOSE: 600 MG
     Dates: start: 20071214
  12. ZONISAMIDE [Concomitant]
     Dosage: TOTAL DAILY DOSE: 500 MG
     Dates: end: 20071214
  13. KEPPRA [Concomitant]
     Dosage: TOTAL DAILY DOSE: 1500 MG
     Dates: end: 20080114
  14. KEPPRA [Concomitant]
     Dosage: TOTAL DAILY DOSE: 750 MG
     Dates: start: 20080114
  15. CYMBALTA [Concomitant]
     Dosage: TOTAL DAILY DOSE: 120 MG
     Dates: start: 20080601
  16. CYMBALTA [Concomitant]
     Dosage: TOTAL DAILY DOSE: 60 MG
     Dates: start: 20080301, end: 20080401
  17. CELEXA [Concomitant]
     Dosage: TOTAL DAILY DOSE: 40 MG
  18. WELLBUTRIN [Concomitant]
     Dosage: TOTAL DAILY DOSE: 75 MG

REACTIONS (8)
  - ANXIETY [None]
  - APHASIA [None]
  - DEPRESSION [None]
  - LYMPHADENITIS FUNGAL [None]
  - POST-TRAUMATIC STRESS DISORDER [None]
  - STARING [None]
  - STATUS EPILEPTICUS [None]
  - SUICIDAL IDEATION [None]
